FAERS Safety Report 4398095-7 (Version None)
Quarter: 2004Q3

REPORT INFORMATION
  Report Type: 
  Country: None (occurrence: None)
  Receive Date: 20040713
  Receipt Date: 20040630
  Transmission Date: 20050211
  Serious: Yes (Life-Threatening, Other)
  Sender: FDA-Public Use
  Company Number: 2004033660

PATIENT
  Age: 26 Year
  Sex: Female

DRUGS (3)
  1. VIAGRA [Suspect]
     Indication: CARDIAC DISORDER
     Dosage: 150 MG (50 MG, 3 IN 1 D), ORAL
     Route: 048
  2. VIAGRA [Suspect]
     Indication: PULMONARY HYPERTENSION
     Dosage: 150 MG (50 MG, 3 IN 1 D), ORAL
     Route: 048
  3. WARFARIN (WARFARIN) [Suspect]
     Indication: ILL-DEFINED DISORDER
     Dosage: ORAL
     Route: 048

REACTIONS (2)
  - COAGULATION TIME PROLONGED [None]
  - INTERNATIONAL NORMALISED RATIO ABNORMAL [None]
